FAERS Safety Report 5579225-8 (Version None)
Quarter: 2008Q1

REPORT INFORMATION
  Report Type: 
  Country: None (occurrence: None)
  Receive Date: 20080102
  Receipt Date: 20071228
  Transmission Date: 20080703
  Serious: Yes (Other)
  Sender: FDA-Public Use
  Company Number: JP-BRACCO-BEI-007725

PATIENT
  Age: 64 Year
  Sex: Female
  Weight: 52.4 kg

DRUGS (16)
  1. PROHANCE [Suspect]
     Indication: NUCLEAR MAGNETIC RESONANCE IMAGING BRAIN
     Route: 042
     Dates: start: 20071019, end: 20071019
  2. BUFFERIN [Concomitant]
     Route: 048
     Dates: end: 20071212
  3. PREDONINE [Concomitant]
     Route: 048
  4. IRINATOLON [Concomitant]
     Route: 065
  5. BALANCE [Concomitant]
     Route: 065
  6. GASTER [Concomitant]
     Route: 048
  7. YODEL [Concomitant]
     Route: 048
  8. RABEPRAZOLE SODIUM [Concomitant]
     Route: 048
  9. DIOVAN                             /01319601/ [Concomitant]
     Route: 048
  10. NORVASC [Concomitant]
     Route: 048
  11. OXYGEN [Concomitant]
     Route: 055
     Dates: start: 20071019
  12. LACTEC [Concomitant]
     Route: 042
     Dates: start: 20071019
  13. ATROPINE [Concomitant]
     Route: 030
  14. NITROPEN [Concomitant]
     Route: 048
  15. FRANDOL [Concomitant]
     Route: 061
  16. ITOROL [Concomitant]
     Route: 048

REACTIONS (3)
  - ACUTE MYOCARDIAL INFARCTION [None]
  - BLOOD PRESSURE INCREASED [None]
  - LOSS OF CONSCIOUSNESS [None]
